FAERS Safety Report 5056408-7 (Version None)
Quarter: 2006Q3

REPORT INFORMATION
  Report Type: 
  Country: None (occurrence: None)
  Receive Date: 20060720
  Receipt Date: 20060711
  Transmission Date: 20061208
  Serious: Yes (Life-Threatening, Hospitalization)
  Sender: FDA-Public Use
  Company Number: BR-ROCHE-454660

PATIENT
  Age: 22 Year
  Sex: Female

DRUGS (1)
  1. FLANAX [Suspect]
     Route: 048
     Dates: start: 20060620, end: 20060620

REACTIONS (5)
  - ANAPHYLACTIC SHOCK [None]
  - CARDIAC ARREST [None]
  - DIARRHOEA [None]
  - HYPOTENSION [None]
  - VOMITING [None]
